FAERS Safety Report 19112406 (Version 1)
Quarter: 2021Q2

REPORT INFORMATION
  Report Type: Other
  Country: US (occurrence: US)
  Receive Date: 20210409
  Receipt Date: 20210409
  Transmission Date: 20210717
  Serious: Yes (Other)
  Sender: FDA-Public Use
  Company Number: US-ROCHE-2782408

PATIENT

DRUGS (5)
  1. PEGLOTICASE [Suspect]
     Active Substance: PEGLOTICASE
     Indication: GOUT
     Route: 042
  2. MYCOPHENOLATE MOFETIL. [Suspect]
     Active Substance: MYCOPHENOLATE MOFETIL
     Indication: GOUT
     Route: 065
  3. ACETAMINOPHEN. [Concomitant]
     Active Substance: ACETAMINOPHEN
     Indication: PROPHYLAXIS
     Route: 048
  4. FEXOFENADINE [Concomitant]
     Active Substance: FEXOFENADINE HYDROCHLORIDE
     Indication: PROPHYLAXIS
     Route: 048
  5. HYDROCORTISONE. [Concomitant]
     Active Substance: HYDROCORTISONE
     Indication: PROPHYLAXIS
     Route: 042

REACTIONS (17)
  - Chest pain [Recovered/Resolved]
  - Myalgia [Unknown]
  - Skin disorder [Unknown]
  - Infection [Unknown]
  - Musculoskeletal injury [Unknown]
  - Bursitis [Unknown]
  - Fatigue [Unknown]
  - Anxiety [Unknown]
  - Gastrointestinal disorder [Unknown]
  - Toxicity to various agents [Unknown]
  - Back pain [Unknown]
  - Arthralgia [Unknown]
  - Transaminases increased [Unknown]
  - Abdominal pain [Recovered/Resolved]
  - Tendonitis [Unknown]
  - Muscle spasms [Unknown]
  - Cardiac disorder [Unknown]
